FAERS Safety Report 7732910-1 (Version None)
Quarter: 2011Q3

REPORT INFORMATION
  Report Type: 
  Country: None (occurrence: None)
  Receive Date: 20110902
  Receipt Date: 20110902
  Transmission Date: 20111222
  Serious: Yes (Death)
  Sender: FDA-Public Use
  Company Number: None

PATIENT
  Age: 69 Year
  Sex: Male
  Weight: 86.4 kg

DRUGS (3)
  1. CARAFATE [Suspect]
     Indication: OESOPHAGEAL PAIN
     Dosage: 2TSP 1G/10ML 30 MINUTES BEFORE MEAL ORAL
     Route: 048
     Dates: start: 20110407, end: 20110512
  2. CARAFATE [Suspect]
     Indication: RADIATION ASSOCIATED PAIN
     Dosage: 2TSP 1G/10ML 30 MINUTES BEFORE MEAL ORAL
     Route: 048
     Dates: start: 20110407, end: 20110512
  3. CARAFATE [Suspect]
     Indication: BARRETT'S OESOPHAGUS
     Dosage: 2TSP 1G/10ML 30 MINUTES BEFORE MEAL ORAL
     Route: 048
     Dates: start: 20110407, end: 20110512

REACTIONS (4)
  - OXYGEN SATURATION DECREASED [None]
  - DYSPNOEA [None]
  - CYANOSIS [None]
  - PANIC ATTACK [None]
